FAERS Safety Report 14105293 (Version 2)
Quarter: 2018Q2

REPORT INFORMATION
  Report Type: Spontaneous
  Country: FR (occurrence: FR)
  Receive Date: 20171018
  Receipt Date: 20180517
  Transmission Date: 20180711
  Serious: Yes (Other)
  Sender: FDA-Public Use
  Company Number: FR-MERCK KGAA-2030628

PATIENT
  Age: 64 Year
  Sex: Female

DRUGS (4)
  1. NOVOTHYROX [Suspect]
     Active Substance: LEVOTHYROXINE SODIUM
     Indication: HYPOTHYROIDISM
     Route: 048
     Dates: start: 201704
  2. EUTHYRAL(NOVOTHYRAL) [Suspect]
     Active Substance: LEVOTHYROXINE SODIUM\LIOTHYRONINE SODIUM
     Route: 048
  3. EUTHYRAL(NOVOTHYRAL) [Suspect]
     Active Substance: LEVOTHYROXINE SODIUM\LIOTHYRONINE SODIUM
     Route: 048
     Dates: start: 2015
  4. LEVOTHYROX 25 NF [Suspect]
     Active Substance: LEVOTHYROXINE SODIUM
     Route: 048
     Dates: end: 2017

REACTIONS (18)
  - Diarrhoea [Recovered/Resolved]
  - Blood thyroid stimulating hormone decreased [None]
  - Myalgia [Recovered/Resolved]
  - Tri-iodothyronine free increased [None]
  - Hyperhidrosis [Recovered/Resolved]
  - Anxiety [None]
  - Loss of personal independence in daily activities [None]
  - Thyroxine free decreased [None]
  - Abdominal pain [Recovered/Resolved]
  - Headache [Recovered/Resolved]
  - Drug intolerance [None]
  - Blood thyroid stimulating hormone increased [Not Recovered/Not Resolved]
  - Gait disturbance [None]
  - Pain [None]
  - Fatigue [Recovered/Resolved]
  - Nausea [Recovered/Resolved]
  - Arthralgia [Recovered/Resolved]
  - Muscle spasms [Recovered/Resolved]

NARRATIVE: CASE EVENT DATE: 2017
